FAERS Safety Report 13876321 (Version 1)
Quarter: 2017Q3

REPORT INFORMATION
  Report Type: Spontaneous
  Country: US (occurrence: US)
  Receive Date: 20170817
  Receipt Date: 20170817
  Transmission Date: 20171127
  Serious: Yes (Other)
  Sender: FDA-Public Use
  Company Number: US-AMGEN-USASP2017121410

PATIENT
  Sex: Female

DRUGS (2)
  1. ENBREL [Suspect]
     Active Substance: ETANERCEPT
     Indication: PRODUCT USED FOR UNKNOWN INDICATION
     Dosage: UNK
     Route: 065
  2. GABAPENTIN. [Concomitant]
     Active Substance: GABAPENTIN
     Dosage: 300 MG, QHS

REACTIONS (10)
  - Dyspnoea [Unknown]
  - Paraesthesia [Not Recovered/Not Resolved]
  - Deep vein thrombosis [Unknown]
  - Weight increased [Unknown]
  - Joint effusion [Unknown]
  - Hypoaesthesia [Not Recovered/Not Resolved]
  - Drug ineffective [Unknown]
  - Synovitis [Not Recovered/Not Resolved]
  - Liver function test increased [Unknown]
  - Musculoskeletal stiffness [Unknown]
